FAERS Safety Report 5442820-0 (Version None)
Quarter: 2007Q3

REPORT INFORMATION
  Report Type: 
  Country: None (occurrence: None)
  Receive Date: 20070904
  Receipt Date: 20070827
  Transmission Date: 20080115
  Serious: Yes (Hospitalization)
  Sender: FDA-Public Use
  Company Number: DE-MERCK-0708DEU00543

PATIENT
  Age: 49 Year
  Sex: Female

DRUGS (1)
  1. FOSAMAX [Suspect]
     Indication: OSTEOPOROSIS
     Route: 048
     Dates: start: 20010101

REACTIONS (5)
  - ABSCESS [None]
  - ABSCESS JAW [None]
  - OSTEOMYELITIS [None]
  - PARAPHARYNGEAL ABSCESS [None]
  - TOOTH DISORDER [None]
